FAERS Safety Report 6203933-9 (Version None)
Quarter: 2009Q2

REPORT INFORMATION
  Report Type: 
  Country: None (occurrence: None)
  Receive Date: 20090527
  Receipt Date: 20090515
  Transmission Date: 20091009
  Serious: Yes (Hospitalization)
  Sender: FDA-Public Use
  Company Number: A0785936A

PATIENT
  Age: 58 Year
  Sex: Female
  Weight: 84.1 kg

DRUGS (2)
  1. AVANDIA [Suspect]
     Route: 065
     Dates: start: 20050801, end: 20070601
  2. AMARYL [Concomitant]
     Dates: start: 20040101, end: 20071101

REACTIONS (1)
  - TRANSIENT ISCHAEMIC ATTACK [None]
